FAERS Safety Report 6449802-0 (Version None)
Quarter: 2009Q4

REPORT INFORMATION
  Report Type: 
  Country: None (occurrence: None)
  Receive Date: 20091120
  Receipt Date: 20091106
  Transmission Date: 20100525
  Serious: Yes (Other)
  Sender: FDA-Public Use
  Company Number: FR-GENENTECH-294543

PATIENT
  Age: 41 Year
  Sex: Female

DRUGS (4)
  1. XOLAIR [Suspect]
     Indication: ASTHMA
     Dosage: UNK
  2. SYMBICORT [Suspect]
     Indication: ASTHMA
     Dosage: UNK
  3. NEXIUM [Suspect]
     Indication: DRUG USE FOR UNKNOWN INDICATION
  4. BRONCHODUAL [Suspect]
     Indication: ASTHMA

REACTIONS (2)
  - ABORTION [None]
  - DRUG EXPOSURE DURING PREGNANCY [None]
